FAERS Safety Report 20628796 (Version 1)
Quarter: 2022Q1

REPORT INFORMATION
  Report Type: Spontaneous
  Country: US (occurrence: None)
  Receive Date: 20220323
  Receipt Date: 20220323
  Transmission Date: 20220423
  Serious: Yes (Hospitalization)
  Sender: FDA-Public Use
  Company Number: 2022A115651

PATIENT
  Age: 92 Year
  Sex: Male
  Weight: 77.1 kg

DRUGS (1)
  1. BUDESONIDE\FORMOTEROL\GLYCOPYRRONIUM [Suspect]
     Active Substance: BUDESONIDE\FORMOTEROL\GLYCOPYRRONIUM
     Indication: Chronic obstructive pulmonary disease
     Dosage: 160 MCG/ 9 MCG/ 4.8 MCG 2 PUFFS BID
     Route: 055
     Dates: start: 2021

REACTIONS (4)
  - Fall [Unknown]
  - Drug dose omission by device [Recovered/Resolved]
  - Wrong technique in device usage process [Not Recovered/Not Resolved]
  - Device issue [Unknown]

NARRATIVE: CASE EVENT DATE: 20210901
